FAERS Safety Report 15702261 (Version 1)
Quarter: 2018Q4

REPORT INFORMATION
  Report Type: Spontaneous
  Country: FR (occurrence: FR)
  Receive Date: 20181209
  Receipt Date: 20181209
  Transmission Date: 20190205
  Serious: Yes (Death)
  Sender: FDA-Public Use
  Company Number: FR-TEVA-2018-FR-983936

PATIENT
  Age: 37 Year
  Sex: Male
  Weight: 74 kg

DRUGS (3)
  1. PREDNISONE. [Suspect]
     Active Substance: PREDNISONE
     Indication: GRAFT VERSUS HOST DISEASE IN GASTROINTESTINAL TRACT
     Dosage: 5 MILLIGRAM DAILY;
     Route: 048
     Dates: start: 20180725, end: 20181015
  2. HYDROCORTISONE ROUSSEL (HYDROCORTISONE) [Interacting]
     Active Substance: HYDROCORTISONE
     Indication: ENDOCRINE DISORDER PROPHYLAXIS
     Dosage: 20 MILLIGRAM DAILY;
     Route: 048
     Dates: start: 20180822, end: 20181015
  3. ENTYVIO [Suspect]
     Active Substance: VEDOLIZUMAB
     Indication: GRAFT VERSUS HOST DISEASE IN GASTROINTESTINAL TRACT
     Route: 042
     Dates: start: 20180530, end: 20180905

REACTIONS (2)
  - Drug interaction [Fatal]
  - Septic shock [Fatal]

NARRATIVE: CASE EVENT DATE: 20181015
